FAERS Safety Report 5879920-7 (Version None)
Quarter: 2008Q3

REPORT INFORMATION
  Report Type: 
  Country: None (occurrence: None)
  Receive Date: 20080912
  Receipt Date: 20080902
  Transmission Date: 20090109
  Serious: Yes (Hospitalization, Other)
  Sender: FDA-Public Use
  Company Number: US-ELI_LILLY_AND_COMPANY-US200808003200

PATIENT
  Sex: Female

DRUGS (3)
  1. HUMALOG [Suspect]
  2. HUMULIN N [Suspect]
  3. IRON [Concomitant]

REACTIONS (22)
  - ANAEMIA [None]
  - ARTHRALGIA [None]
  - ATRIOVENTRICULAR BLOCK COMPLETE [None]
  - CARDIAC MURMUR [None]
  - CAROTID BRUIT [None]
  - CEREBROVASCULAR ACCIDENT [None]
  - CONFUSIONAL STATE [None]
  - DRUG HYPERSENSITIVITY [None]
  - FALL [None]
  - HAEMATOCRIT DECREASED [None]
  - HEADACHE [None]
  - HEPARIN-INDUCED THROMBOCYTOPENIA [None]
  - HYPERTENSION [None]
  - HYPOGLYCAEMIA [None]
  - LIMB INJURY [None]
  - LOGORRHOEA [None]
  - LOSS OF CONSCIOUSNESS [None]
  - OCCIPITAL NEURALGIA [None]
  - OEDEMA PERIPHERAL [None]
  - PLATELET COUNT DECREASED [None]
  - SEBORRHOEIC KERATOSIS [None]
  - THROMBOSIS [None]
